FAERS Safety Report 18313691 (Version 2)
Quarter: 2021Q1

REPORT INFORMATION
  Report Type: Report from Study
  Country: TR (occurrence: TR)
  Receive Date: 20200925
  Receipt Date: 20210329
  Transmission Date: 20210419
  Serious: Yes (Disabling)
  Sender: FDA-Public Use
  Company Number: TR-BIOGEN-2020BI00919950

PATIENT
  Age: 5 Year
  Sex: Male

DRUGS (2)
  1. SPINRAZA [Suspect]
     Active Substance: NUSINERSEN
     Indication: SPINAL MUSCULAR ATROPHY
     Route: 065
     Dates: start: 20190311
  2. SPINRAZA [Suspect]
     Active Substance: NUSINERSEN
     Dosage: 2.4 MG / ML VIAL CONTAINING SOLUTION FOR INTRATHECAL INJECTION
     Route: 065

REACTIONS (1)
  - Hepatic enzyme increased [Not Recovered/Not Resolved]

NARRATIVE: CASE EVENT DATE: 20190607
